FAERS Safety Report 9253137 (Version 1)
Quarter: 2013Q2

REPORT INFORMATION
  Report Type: Spontaneous
  Country: US (occurrence: US)
  Receive Date: 20130424
  Receipt Date: 20130424
  Transmission Date: 20140414
  Serious: Yes (Other)
  Sender: FDA-Public Use
  Company Number: US-TEVA-400350USA

PATIENT
  Age: 20 Year
  Sex: Female
  Weight: 56.75 kg

DRUGS (4)
  1. AMPHETAMINE W/DEXTROAMPHETAMINE [Suspect]
     Indication: ATTENTION DEFICIT/HYPERACTIVITY DISORDER
     Dosage: 15 MILLIGRAM DAILY;
     Dates: start: 201204
  2. SERTRALINE [Interacting]
     Indication: ANXIETY
     Dosage: 100 MILLIGRAM DAILY;
     Dates: start: 2009
  3. SERTRALINE [Interacting]
     Dosage: 50 MILLIGRAM DAILY;
     Dates: start: 20130401, end: 20130403
  4. CILEST [Concomitant]
     Indication: OVARIAN CYST

REACTIONS (7)
  - Seizure like phenomena [Unknown]
  - Loss of consciousness [Unknown]
  - Deafness [Unknown]
  - Drug interaction [Unknown]
  - Confusional state [Unknown]
  - VIIth nerve paralysis [Unknown]
  - Feeling abnormal [Unknown]
